FAERS Safety Report 7539756-8 (Version None)
Quarter: 2011Q2

REPORT INFORMATION
  Report Type: 
  Country: None (occurrence: None)
  Receive Date: 20110610
  Receipt Date: 20110531
  Transmission Date: 20111010
  Serious: Yes (Other)
  Sender: FDA-Public Use
  Company Number: PHHY2011US47358

PATIENT
  Sex: Female

DRUGS (1)
  1. ZADITOR [Suspect]
     Indication: HYPERSENSITIVITY
     Dosage: UNK UKN, UNK

REACTIONS (3)
  - PNEUMONIA [None]
  - MALAISE [None]
  - EYE IRRITATION [None]
